FAERS Safety Report 20333519 (Version 1)
Quarter: 2022Q1

REPORT INFORMATION
  Report Type: Other
  Country: AU (occurrence: None)
  Receive Date: 20220113
  Receipt Date: 20220113
  Transmission Date: 20220423
  Serious: Yes (Life-Threatening, Hospitalization)
  Sender: FDA-Public Use
  Company Number: AU-Merck Healthcare KGaA-9281586

PATIENT
  Age: 39 Year
  Sex: Female
  Weight: 52 kg

DRUGS (4)
  1. LEVOTHYROXINE SODIUM [Suspect]
     Active Substance: LEVOTHYROXINE SODIUM
     Indication: Hypothyroidism
  2. LEVOTHYROXINE SODIUM [Suspect]
     Active Substance: LEVOTHYROXINE SODIUM
     Dosage: INCREASED TO 1000 UG
  3. LEVOTHYROXINE SODIUM [Suspect]
     Active Substance: LEVOTHYROXINE SODIUM
  4. DESVENLAFAXINE [Concomitant]
     Active Substance: DESVENLAFAXINE
     Indication: Product used for unknown indication

REACTIONS (5)
  - Cardiomyopathy [Recovered/Resolved]
  - Hyperthyroidism [Recovered/Resolved]
  - Atrial fibrillation [Recovered/Resolved]
  - Respiratory syncytial virus infection [Recovered/Resolved]
  - Intentional product misuse [Recovered/Resolved]
